FAERS Safety Report 6332197-0 (Version None)
Quarter: 2009Q3

REPORT INFORMATION
  Report Type: 
  Country: None (occurrence: None)
  Receive Date: 20090828
  Receipt Date: 20090817
  Transmission Date: 20100115
  Serious: Yes (Hospitalization)
  Sender: FDA-Public Use
  Company Number: DK-PFIZER INC-2009255983

PATIENT
  Age: 32 Year

DRUGS (3)
  1. LYRICA [Suspect]
     Indication: PAIN
     Dosage: 25 MG, 2X/DAY
     Route: 048
     Dates: start: 20090712, end: 20090714
  2. RIVOTRIL [Concomitant]
     Indication: PAIN
     Dosage: 2 MG, 1X/DAY
     Dates: start: 20090101
  3. VENLAFAXINE [Concomitant]
     Indication: DEPRESSION
     Dosage: 75 MG, 1X/DAY
     Dates: start: 20090101

REACTIONS (2)
  - DAYDREAMING [None]
  - SOMNOLENCE [None]
